FAERS Safety Report 12865702 (Version 1)
Quarter: 2016Q4

REPORT INFORMATION
  Report Type: Spontaneous
  Country: CN (occurrence: CN)
  Receive Date: 20161020
  Receipt Date: 20161020
  Transmission Date: 20170207
  Serious: Yes (Other)
  Sender: FDA-Public Use
  Company Number: CN-PFIZER INC-2016486886

PATIENT
  Age: 34 Year
  Sex: Female
  Weight: 29 kg

DRUGS (5)
  1. NORMAL SALINE [Concomitant]
     Active Substance: SODIUM CHLORIDE
     Dosage: 0.9% NS, 100 ML, Q12H
     Dates: start: 20160726, end: 20160726
  2. VORICONAZOLE. [Suspect]
     Active Substance: VORICONAZOLE
     Dosage: UNK
     Dates: start: 20160801
  3. NORMAL SALINE [Concomitant]
     Active Substance: SODIUM CHLORIDE
     Dosage: 0.9% NS, 250 ML, Q12H
     Dates: start: 20160725, end: 20160725
  4. VORICONAZOLE. [Suspect]
     Active Substance: VORICONAZOLE
     Dosage: 200 MG, Q12H(8:00 AM, 20:00 PM)
     Route: 041
     Dates: start: 20160726, end: 20160726
  5. VORICONAZOLE. [Suspect]
     Active Substance: VORICONAZOLE
     Dosage: 400 MG, 2X/DAY (8:00 AM, 20:00 PM)
     Route: 041
     Dates: start: 20160725, end: 20160725

REACTIONS (7)
  - Vision blurred [Recovering/Resolving]
  - Dry eye [Recovering/Resolving]
  - Ocular discomfort [Recovering/Resolving]
  - Insomnia [Recovering/Resolving]
  - Visual impairment [Recovering/Resolving]
  - Hallucination, visual [Recovering/Resolving]
  - Visual brightness [Recovering/Resolving]

NARRATIVE: CASE EVENT DATE: 20160725
